FAERS Safety Report 26013421 (Version 1)
Quarter: 2025Q4

REPORT INFORMATION
  Report Type: Spontaneous
  Country: US (occurrence: None)
  Receive Date: 20251107
  Receipt Date: 20251107
  Transmission Date: 20260118
  Serious: Yes (Hospitalization, Other)
  Sender: UCB
  Company Number: US-UCBSA-2025069362

PATIENT
  Age: 23 Year
  Weight: 42.3 kg

DRUGS (17)
  1. VIMPAT [Suspect]
     Active Substance: LACOSAMIDE
     Indication: Product used for unknown indication
     Dosage: 100 MILLIGRAM, 2X/DAY (BID)
  2. VIMPAT [Suspect]
     Active Substance: LACOSAMIDE
     Dosage: 200 MILLIGRAM, 2X/DAY (BID)
  3. SINGULAIR [Concomitant]
     Active Substance: MONTELUKAST SODIUM
     Indication: Product used for unknown indication
     Dosage: 10 MILLIGRAM, ONCE DAILY (QD)
  4. DIASTAT ACUDIAL [Concomitant]
     Active Substance: DIAZEPAM
     Indication: Product used for unknown indication
     Dosage: 10 MILLIGRAM IF SEIZURE CONTINUES MORE THAN 5 MINUTES AFTER GIVING 20 MG DOSE
  5. DIASTAT ACUDIAL [Concomitant]
     Active Substance: DIAZEPAM
     Dosage: 10 MILLIGRAM IF SEIZURE ACTIVITY MORE THAN 10 MINS DURATION, FOLLOW SEIZURE EMERGENCY PALN
  6. XYZAL [Concomitant]
     Active Substance: LEVOCETIRIZINE DIHYDROCHLORIDE
     Indication: Product used for unknown indication
     Dosage: 5 MILLIGRAM, ONCE DAILY (QD), IN THE EVENING
  7. DIAZEPAM [Concomitant]
     Active Substance: DIAZEPAM
     Indication: Product used for unknown indication
     Dosage: 10 MILLIGRAM, SEIZURE ACTVITY MORE THAN 10 MIN DURATION
  8. XCOPRI [Concomitant]
     Active Substance: CENOBAMATE
     Indication: Product used for unknown indication
     Dosage: 200 MILLIGRAM, ONCE DAILY (QD), AT BEDTIME
  9. FELBAMATE [Concomitant]
     Active Substance: FELBAMATE
     Indication: Product used for unknown indication
     Dosage: 2400 MILLIGRAM, 2X/DAY (BID)
  10. CLONAZEPAM [Concomitant]
     Active Substance: CLONAZEPAM
     Indication: Product used for unknown indication
     Dosage: 0.5 MILLIGRAM, 2X/DAY (BID), AUROBINDO MANUFACTURER ONLY
  11. BRIVIACT [Concomitant]
     Active Substance: BRIVARACETAM
     Indication: Product used for unknown indication
     Dosage: 50 MILLIGRAM, 2X/DAY (BID), TOTAL DOSE 250 MG BID
  12. BRIVIACT [Concomitant]
     Active Substance: BRIVARACETAM
     Dosage: 200 MILLIGRAM, 2X/DAY (BID), TOTAL DOSE 250 MG BID
  13. ONFI [Concomitant]
     Active Substance: CLOBAZAM
     Indication: Product used for unknown indication
     Dosage: UNK
  14. FELBATOL [Concomitant]
     Active Substance: FELBAMATE
     Indication: Product used for unknown indication
     Dosage: UNK
  15. TOPAMAX [Concomitant]
     Active Substance: TOPIRAMATE
     Indication: Product used for unknown indication
     Dosage: UNK
  16. KLONOPIN [Concomitant]
     Active Substance: CLONAZEPAM
     Indication: Product used for unknown indication
     Dosage: UNK
  17. BANZEL [Concomitant]
     Active Substance: RUFINAMIDE
     Indication: Product used for unknown indication
     Dosage: UNK

REACTIONS (12)
  - Seizure cluster [Unknown]
  - Petit mal epilepsy [Unknown]
  - Seizure [Unknown]
  - Tachycardia [Unknown]
  - Hypertension [Unknown]
  - Angioedema [Unknown]
  - Balance disorder [Unknown]
  - Asthenia [Unknown]
  - Mental status changes [Unknown]
  - Rash [Unknown]
  - Generalised oedema [Unknown]
  - Medical device adjustment [Unknown]
